FAERS Safety Report 23999600 (Version 1)
Quarter: 2024Q2

REPORT INFORMATION
  Report Type: Spontaneous
  Country: US (occurrence: None)
  Receive Date: 20240620
  Receipt Date: 20240620
  Transmission Date: 20240716
  Serious: Yes (Other)
  Sender: FDA-Public Use
  Company Number: None

PATIENT
  Age: 60 Year
  Sex: Male
  Weight: 51.3 kg

DRUGS (17)
  1. POMALYST [Suspect]
     Active Substance: POMALIDOMIDE
     Indication: Plasma cell myeloma
     Dosage: FREQUENCY : DAILY;?
     Route: 048
     Dates: start: 20230127, end: 20230801
  2. OXYCODONE [Concomitant]
  3. SEVELAMER CARBONATE [Concomitant]
  4. TRAMADOL [Concomitant]
  5. ELIQUIS [Concomitant]
  6. Zofran [Concomitant]
  7. MIDODRINE [Concomitant]
  8. SINGULAIR [Concomitant]
  9. PANTOPRAZOLE [Concomitant]
  10. PROCHLORPERAZINE MALEATE [Concomitant]
  11. DOXYCYCLINE [Concomitant]
  12. GABAPENTIN [Concomitant]
  13. OLANZAPINE [Concomitant]
  14. DRONABINOL [Concomitant]
  15. IBUPROFEN [Concomitant]
  16. Lomotil [Concomitant]
  17. Potassium Chloride ER [Concomitant]

REACTIONS (2)
  - Blood creatinine abnormal [None]
  - Blood calcium abnormal [None]

NARRATIVE: CASE EVENT DATE: 20240620
